FAERS Safety Report 8555130-X (Version None)
Quarter: 2012Q3

REPORT INFORMATION
  Report Type: 
  Country: None (occurrence: None)
  Receive Date: 20120731
  Receipt Date: 20120724
  Transmission Date: 20120928
  Serious: Yes (Other)
  Sender: FDA-Public Use
  Company Number: FR-FRI-1000030544

PATIENT
  Sex: Female

DRUGS (2)
  1. ESCITALOPRAM [Suspect]
     Indication: DEPRESSION
     Dosage: 5 MG
     Route: 048
     Dates: start: 20120424
  2. ESCITALOPRAM [Suspect]
     Dosage: 10 MG
     Route: 048
     Dates: end: 20120502

REACTIONS (1)
  - RECTAL HAEMORRHAGE [None]
